FAERS Safety Report 20722913 (Version 1)
Quarter: 2022Q2

REPORT INFORMATION
  Report Type: Spontaneous
  Country: KR (occurrence: None)
  Receive Date: 20220419
  Receipt Date: 20220419
  Transmission Date: 20220720
  Serious: Yes (Death, Hospitalization, Other)
  Sender: FDA-Public Use
  Company Number: KR-VistaPharm, Inc.-VER202204-000322

PATIENT
  Age: 57 Year
  Sex: Male

DRUGS (2)
  1. MYCOPHENOLATE MOFETIL [Suspect]
     Active Substance: MYCOPHENOLATE MOFETIL
     Indication: Immunosuppression
     Dosage: 720 MG
     Route: 065
  2. CYCLOSPORINE [Suspect]
     Active Substance: CYCLOSPORINE
     Indication: Immunosuppression
     Dosage: 50 MG
     Route: 065

REACTIONS (5)
  - Sepsis [Fatal]
  - Mental status changes [Not Recovered/Not Resolved]
  - Bedridden [Unknown]
  - Gastrointestinal haemorrhage [Fatal]
  - Cerebral toxoplasmosis [Recovering/Resolving]
